FAERS Safety Report 15608541 (Version 2)
Quarter: 2018Q4

REPORT INFORMATION
  Report Type: Spontaneous
  Country: CN (occurrence: CN)
  Receive Date: 20181112
  Receipt Date: 20181114
  Transmission Date: 20190205
  Serious: Yes (Hospitalization)
  Sender: FDA-Public Use
  Company Number: CN-SA-2018SA300322

PATIENT
  Age: 54 Year
  Sex: Female
  Weight: 75 kg

DRUGS (2)
  1. ASPIRINE [Concomitant]
     Active Substance: ASPIRIN
     Indication: SURGERY
     Dosage: UNK UNK, UNK
     Route: 048
     Dates: start: 201807
  2. PLAVIX [Suspect]
     Active Substance: CLOPIDOGREL BISULFATE
     Indication: SURGERY
     Dosage: 1 DF, QD
     Route: 048
     Dates: start: 201807, end: 20181030

REACTIONS (3)
  - Myocardial infarction [Recovered/Resolved]
  - Product counterfeit [Unknown]
  - Drug resistance [Unknown]

NARRATIVE: CASE EVENT DATE: 20181016
